FAERS Safety Report 17521333 (Version 1)
Quarter: 2020Q1

REPORT INFORMATION
  Report Type: Spontaneous
  Country: FR (occurrence: FR)
  Receive Date: 20200310
  Receipt Date: 20200310
  Transmission Date: 20200409
  Serious: Yes (Other)
  Sender: FDA-Public Use
  Company Number: FR-MYLANLABS-2020M1024742

PATIENT
  Age: 41 Year
  Sex: Male
  Weight: 87 kg

DRUGS (4)
  1. CEFTRIAXONE MERCK [Suspect]
     Active Substance: CEFTRIAXONE
     Indication: INFECTION PROPHYLAXIS
     Dosage: 2 GRAM
     Route: 042
     Dates: start: 20191201, end: 20191204
  2. HEPARINE CHOAY [Suspect]
     Active Substance: HEPARIN SODIUM
     Indication: AORTIC DISSECTION
     Dosage: 32500 INTERNATIONAL UNIT
     Route: 041
     Dates: start: 20191130, end: 20191204
  3. DISULONE [Suspect]
     Active Substance: DAPSONE\FERROUS OXALATE
     Indication: HERPES DERMATITIS
     Dosage: 1 DOSAGE FORM, QD
     Route: 048
     Dates: start: 201811, end: 20200103
  4. BISOCE 1,25 MG, COMPRIM? PELLICUL? [Suspect]
     Active Substance: BISOPROLOL FUMARATE
     Indication: HYPERTENSION
     Dosage: 1 DOSAGE FORM, QD
     Route: 048
     Dates: start: 20191201

REACTIONS (2)
  - Cholestasis [Not Recovered/Not Resolved]
  - Hepatocellular injury [Not Recovered/Not Resolved]

NARRATIVE: CASE EVENT DATE: 20191205
